FAERS Safety Report 6416695-7 (Version None)
Quarter: 2009Q4

REPORT INFORMATION
  Report Type: 
  Country: None (occurrence: None)
  Receive Date: 20091027
  Receipt Date: 20091022
  Transmission Date: 20100525
  Serious: Yes (Death, Other)
  Sender: FDA-Public Use
  Company Number: FR-CELGENEUS-056-50794-09101843

PATIENT
  Sex: Male

DRUGS (1)
  1. VIDAZA [Suspect]
     Indication: OFF LABEL USE
     Route: 065

REACTIONS (6)
  - DRUG INEFFECTIVE [None]
  - INFECTION [None]
  - NEUTROPENIA [None]
  - OFF LABEL USE [None]
  - SEPTIC SHOCK [None]
  - URINARY TRACT INFECTION [None]
